FAERS Safety Report 13281791 (Version 13)
Quarter: 2022Q1

REPORT INFORMATION
  Report Type: Spontaneous
  Country: US (occurrence: US)
  Receive Date: 20170301
  Receipt Date: 20220328
  Transmission Date: 20220423
  Serious: Yes (Hospitalization, Other)
  Sender: FDA-Public Use
  Company Number: US-PFIZER INC-2017086148

PATIENT
  Age: 69 Year
  Sex: Female
  Weight: 67.12 kg

DRUGS (25)
  1. XELJANZ XR [Suspect]
     Active Substance: TOFACITINIB CITRATE
     Indication: Rheumatoid arthritis
     Dosage: 11 MG, 1X/DAY
     Route: 048
     Dates: start: 201702
  2. XELJANZ XR [Suspect]
     Active Substance: TOFACITINIB CITRATE
     Dosage: UNK
  3. CLIMARA PRO [Concomitant]
     Active Substance: ESTRADIOL\LEVONORGESTREL
     Dosage: UNK
     Route: 062
  4. RANITIDINE [Concomitant]
     Active Substance: RANITIDINE
     Dosage: 300 MG, UNK
  5. ADVIL [Concomitant]
     Active Substance: IBUPROFEN
     Dosage: UNK, AS NEEDED
  6. ADVIL PM [Concomitant]
     Active Substance: DIPHENHYDRAMINE CITRATE\IBUPROFEN
     Dosage: UNK, AS NEEDED
  7. ALLEGRA [Concomitant]
     Active Substance: FEXOFENADINE HYDROCHLORIDE
     Dosage: UNK, AS NEEDED
  8. BONIVA [Concomitant]
     Active Substance: IBANDRONATE SODIUM
     Dosage: UNK
  9. COENZYME Q10 [Concomitant]
     Active Substance: DIETARY SUPPLEMENT\UBIDECARENONE
     Dosage: UNK, DAILY
  10. CRANBERRY [Concomitant]
     Active Substance: CRANBERRY
     Dosage: UNK, DAILY
  11. FISH OIL [Concomitant]
     Active Substance: FISH OIL
     Dosage: UNK, DAILY
  12. HERBALS\GARCINIA CAMBOGIA FRUIT [Concomitant]
     Active Substance: HERBALS\GARCINIA CAMBOGIA FRUIT
     Dosage: UNK, ALTERNATE DAY (EVERY OTHER DAY)
  13. GLUCOSAMINE + CHONDROITIN [Concomitant]
     Dosage: UNK, DAILY
  14. GREEN TEA EXTRACT [Concomitant]
     Dosage: UNK, ALTERNATE DAY (EVERY OTHER DAY)
  15. LUTEIN [Concomitant]
     Active Substance: LUTEIN
     Dosage: UNK, DAILY
  16. HERBALS\TURMERIC [Concomitant]
     Active Substance: HERBALS\TURMERIC
     Dosage: 800 MG, TWICE DAILY
  17. VITAMIN B12 [Concomitant]
     Active Substance: CYANOCOBALAMIN
     Dosage: UNK, DAILY
  18. ZOLMITRIPTAN [Concomitant]
     Active Substance: ZOLMITRIPTAN
     Indication: Migraine
     Dosage: UNK, AS NEEDED
  19. MAGNESIUM OXIDE [Concomitant]
     Active Substance: MAGNESIUM OXIDE
     Dosage: UNK, ALTERNATE DAY (EVERY OTHER DAY)
  20. FOLIC ACID [Concomitant]
     Active Substance: FOLIC ACID
     Dosage: UNK, DAILY
  21. PREDNISONE [Concomitant]
     Active Substance: PREDNISONE
     Dosage: UNK, AS NEEDED
  22. SULFASALAZINE [Concomitant]
     Active Substance: SULFASALAZINE
     Indication: Rheumatoid arthritis
     Dosage: 500 MG, 2X/DAY (EVERY THREE AM AND THREE PM)
     Dates: start: 2014
  23. ETHYL CHLORIDE [Concomitant]
     Active Substance: ETHYL CHLORIDE
     Dosage: UNK, DAILY
  24. PANTOPRAZOLE [Concomitant]
     Active Substance: PANTOPRAZOLE
     Dosage: UNK, DAILY
  25. BUTALBITAL AND ACETAMINOPHEN [Concomitant]
     Active Substance: ACETAMINOPHEN\BUTALBITAL
     Dosage: UNK, AS NEEDED

REACTIONS (13)
  - Urinary tract infection [Recovered/Resolved]
  - Arthralgia [Recovered/Resolved]
  - Pneumonia [Recovering/Resolving]
  - Therapeutic response unexpected [Not Recovered/Not Resolved]
  - Pre-existing condition improved [Not Recovered/Not Resolved]
  - Constipation [Not Recovered/Not Resolved]
  - Tendonitis [Unknown]
  - Vertigo [Recovered/Resolved]
  - Dizziness [Recovered/Resolved]
  - Nausea [Recovered/Resolved]
  - Cough [Not Recovered/Not Resolved]
  - Product prescribing error [Unknown]
  - Hypoacusis [Unknown]

NARRATIVE: CASE EVENT DATE: 20170101
